FAERS Safety Report 7503803-X (Version None)
Quarter: 2011Q2

REPORT INFORMATION
  Report Type: 
  Country: None (occurrence: None)
  Receive Date: 20110525
  Receipt Date: 20060307
  Transmission Date: 20111010
  Serious: Yes (Other)
  Sender: FDA-Public Use
  Company Number: BE-AMGEN-BELSP2006000008

PATIENT

DRUGS (1)
  1. ARANESP [Suspect]
     Indication: PRODUCT USED FOR UNKNOWN INDICATION
     Dosage: UNK

REACTIONS (2)
  - TRANSIENT ISCHAEMIC ATTACK [None]
  - HAEMOGLOBIN INCREASED [None]
